FAERS Safety Report 18258801 (Version 1)
Quarter: 2020Q3

REPORT INFORMATION
  Report Type: Report from Study
  Country: CA (occurrence: CA)
  Receive Date: 20200911
  Receipt Date: 20200911
  Transmission Date: 20201103
  Serious: Yes (Other)
  Sender: FDA-Public Use
  Company Number: CA-ASTRAZENECA-2020SF11774

PATIENT
  Sex: Female

DRUGS (1)
  1. LYNPARZA [Suspect]
     Active Substance: OLAPARIB
     Indication: OVARIAN CANCER
     Route: 048
     Dates: start: 20200724

REACTIONS (7)
  - Hyperhidrosis [Unknown]
  - Anxiety [Unknown]
  - Agitation [Unknown]
  - Blood pressure decreased [Unknown]
  - Blood iron decreased [Unknown]
  - Irritability [Unknown]
  - Confusional state [Unknown]
